FAERS Safety Report 10223078 (Version 4)
Quarter: 2014Q3

REPORT INFORMATION
  Report Type: Spontaneous
  Country: US (occurrence: US)
  Receive Date: 20140607
  Receipt Date: 20140723
  Transmission Date: 20150326
  Serious: Yes (Other)
  Sender: FDA-Public Use
  Company Number: PHEH2014US011227

PATIENT
  Sex: Female
  Weight: 108 kg

DRUGS (4)
  1. FASLODEX [Suspect]
     Active Substance: FULVESTRANT
     Dosage: 500 MG, UNK
     Dates: start: 200709
  2. FEMARA [Concomitant]
     Active Substance: LETROZOLE
     Dosage: UNK UKN, UNK
  3. ZOMETA [Suspect]
     Active Substance: ZOLEDRONIC ACID
     Indication: BREAST CANCER
  4. ZOMETA [Suspect]
     Active Substance: ZOLEDRONIC ACID
     Indication: METASTASES TO BONE
     Dosage: UNK UKN, UNK
     Dates: start: 200709, end: 201104

REACTIONS (55)
  - Glaucoma [Unknown]
  - Osteosclerosis [Unknown]
  - Hepatic steatosis [Unknown]
  - Sarcoidosis [Unknown]
  - Herpes zoster [Unknown]
  - Hypertension [Unknown]
  - Paraesthesia oral [Unknown]
  - Musculoskeletal chest pain [Unknown]
  - Malaise [Unknown]
  - Arthritis [Unknown]
  - Oral pain [Unknown]
  - Lymphadenopathy mediastinal [Unknown]
  - Lymphoedema [Unknown]
  - Tendon disorder [Unknown]
  - Spinal osteoarthritis [Unknown]
  - Temporomandibular joint syndrome [Unknown]
  - Chest pain [Unknown]
  - Skin ulcer [Unknown]
  - Vulvovaginal dryness [Unknown]
  - Chills [Unknown]
  - Fatigue [Unknown]
  - Osteonecrosis of jaw [Unknown]
  - Osteomyelitis chronic [Unknown]
  - Bronchitis [Unknown]
  - Jaw disorder [Unknown]
  - Actinomycosis [Unknown]
  - Abdominal pain lower [Unknown]
  - Musculoskeletal pain [Unknown]
  - Upper respiratory tract infection [Unknown]
  - Obesity [Unknown]
  - Pain in jaw [Unknown]
  - Intervertebral disc protrusion [Unknown]
  - Gastrooesophageal reflux disease [Unknown]
  - Metastases to bone [Unknown]
  - Primary sequestrum [Unknown]
  - Myofascial pain syndrome [Unknown]
  - Tooth loss [Unknown]
  - Ear pain [Unknown]
  - Lymphadenopathy [Unknown]
  - Lymphoma [Unknown]
  - Mouth swelling [Unknown]
  - Local swelling [Unknown]
  - Headache [Unknown]
  - Back pain [Unknown]
  - Hypoaesthesia [Unknown]
  - Exposed bone in jaw [Unknown]
  - Spondylitis [Unknown]
  - Osteomyelitis acute [Unknown]
  - Procedural nausea [Unknown]
  - Arthralgia [Unknown]
  - Neck pain [Unknown]
  - Toothache [Unknown]
  - Diverticulum intestinal [Unknown]
  - Conjunctival hyperaemia [Unknown]
  - Dizziness [Unknown]
